FAERS Safety Report 9285352 (Version 1)
Quarter: 2013Q2

REPORT INFORMATION
  Report Type: Report from Study
  Country: KR (occurrence: KR)
  Receive Date: 20130513
  Receipt Date: 20130513
  Transmission Date: 20140414
  Serious: Yes (Death)
  Sender: FDA-Public Use
  Company Number: KR-ASTELLAS-2013JP002270

PATIENT
  Age: 49 Year
  Sex: Female
  Weight: 51 kg

DRUGS (11)
  1. TACROLIMUS CAPSULES [Suspect]
     Indication: LUPUS NEPHRITIS
     Dosage: 2 MG, UNKNOWN/D
     Route: 048
     Dates: start: 20120626, end: 20120723
  2. URSODEOXYCHOLIC ACID [Concomitant]
     Dosage: 600 MG, UNKNOWN/D
     Route: 048
  3. HYDROCHLOROTHIAZIDE [Concomitant]
     Dosage: 25 MG, UNKNOWN/D
     Route: 048
  4. AZELASTINE [Concomitant]
     Dosage: 2 MG, UNKNOWN/D
     Route: 048
  5. PREDNISOLONE [Concomitant]
     Dosage: 30 MG, UNKNOWN/D
     Route: 048
     Dates: end: 20120723
  6. NIFEDIPINE [Concomitant]
     Dosage: 33 MG, UNKNOWN/D
     Route: 048
  7. CILAZAPRIL [Concomitant]
     Dosage: 2.5 MG, UNKNOWN/D
     Route: 048
  8. FOLIC ACID [Concomitant]
     Dosage: 1 MG, UNKNOWN/D
     Route: 048
  9. ALPRAZOLAM [Concomitant]
     Dosage: 0.5 MG, UNKNOWN/D
     Route: 048
  10. CLOBETASOL PROPIONATE [Concomitant]
     Dosage: UNK
     Route: 061
  11. FUSIDATE SODIUM [Concomitant]
     Dosage: UNK
     Route: 061

REACTIONS (1)
  - Glomerular filtration rate decreased [Fatal]
